FAERS Safety Report 8266414-7 (Version None)
Quarter: 2012Q2

REPORT INFORMATION
  Report Type: 
  Country: None (occurrence: None)
  Receive Date: 20120406
  Receipt Date: 20120323
  Transmission Date: 20120825
  Serious: Yes (Hospitalization, Other)
  Sender: FDA-Public Use
  Company Number: DE-ASTELLAS-2012US002986

PATIENT
  Sex: Female
  Weight: 43 kg

DRUGS (3)
  1. COLISTIN SULFATE [Concomitant]
     Indication: PRODUCT USED FOR UNKNOWN INDICATION
     Dosage: UNK
     Route: 065
     Dates: start: 20120228
  2. MEROPENEM [Concomitant]
     Indication: PRODUCT USED FOR UNKNOWN INDICATION
     Dosage: UNK
     Route: 065
     Dates: start: 20120228
  3. AMBISOME [Suspect]
     Indication: CYSTIC FIBROSIS
     Dosage: 120 MG, UID/QD
     Route: 042
     Dates: start: 20120228, end: 20120307

REACTIONS (3)
  - ANAPHYLACTIC SHOCK [None]
  - DYSPNOEA [None]
  - FEELING HOT [None]
